FAERS Safety Report 8800082 (Version 1)
Quarter: 2012Q4

REPORT INFORMATION
  Report Type: 
  Country: US (occurrence: US)
  Receive Date: 20120921
  Receipt Date: 20120921
  Transmission Date: 20130627
  Serious: No
  Sender: FDA-Public Use
  Company Number: US-009507513-1209USA000380

PATIENT
  Age: 57 Year
  Sex: Male
  Weight: 83.9 kg

DRUGS (9)
  1. VICTRELIS [Suspect]
     Dosage: 800 mg, tid
     Route: 048
  2. REBETOL [Suspect]
     Dosage: UNK
     Route: 048
  3. REBETOL [Suspect]
     Dosage: 400 mg, bid
     Route: 048
  4. TRAZODONE HYDROCHLORIDE [Concomitant]
     Route: 048
  5. WELLBUTRIN XL [Concomitant]
     Route: 048
  6. PROZAC [Concomitant]
     Route: 048
  7. VITAMINS (UNSPECIFIED) [Concomitant]
     Route: 048
  8. CARNITINE [Concomitant]
     Route: 048
  9. GLUCOSAMINE [Concomitant]
     Route: 048

REACTIONS (1)
  - Red blood cell count decreased [Unknown]
